FAERS Safety Report 16428669 (Version 1)
Quarter: 2019Q2

REPORT INFORMATION
  Report Type: Spontaneous
  Country: US (occurrence: US)
  Receive Date: 20190506
  Receipt Date: 20190506
  Transmission Date: 20190711
  Serious: Yes (Hospitalization)
  Sender: FDA-Public Use
  Company Number: None

PATIENT
  Age: 70 Year
  Sex: Male
  Weight: 93.23 kg

DRUGS (2)
  1. WARFARIN [Suspect]
     Active Substance: WARFARIN
     Indication: DEEP VEIN THROMBOSIS
     Dates: start: 20181127, end: 20190218
  2. WARFARIN [Suspect]
     Active Substance: WARFARIN
     Indication: ATRIAL FIBRILLATION
     Dates: start: 20181127, end: 20190218

REACTIONS (8)
  - Subdural haematoma [None]
  - Transfusion [None]
  - Pneumonia [None]
  - Drug eruption [None]
  - Chronic obstructive pulmonary disease [None]
  - International normalised ratio increased [None]
  - Fluid overload [None]
  - Subdural haemorrhage [None]

NARRATIVE: CASE EVENT DATE: 20190220
